FAERS Safety Report 5905463-8 (Version None)
Quarter: 2008Q4

REPORT INFORMATION
  Report Type: 
  Country: None (occurrence: None)
  Receive Date: 20081001
  Receipt Date: 20081001
  Transmission Date: 20090506
  Serious: Yes (Hospitalization)
  Sender: FDA-Public Use
  Company Number: None

PATIENT
  Age: 67 Year
  Sex: Male
  Weight: 36.9228 kg

DRUGS (1)
  1. OLANZAPINE [Suspect]
     Indication: SCHIZOAFFECTIVE DISORDER
     Dosage: 15 MG AT BEDTIME PO
     Route: 048
     Dates: start: 20080408, end: 20080823

REACTIONS (7)
  - ASTHENIA [None]
  - EXTRAPYRAMIDAL DISORDER [None]
  - FALL [None]
  - TARDIVE DYSKINESIA [None]
  - TONGUE DISORDER [None]
  - TREATMENT NONCOMPLIANCE [None]
  - TREMOR [None]
